FAERS Safety Report 8649865 (Version 4)
Quarter: 2012Q4

REPORT INFORMATION
  Report Type: Report from Study
  Country: NO (occurrence: NO)
  Receive Date: 20120705
  Receipt Date: 20121011
  Transmission Date: 20130627
  Serious: Yes (Hospitalization)
  Sender: FDA-Public Use
  Company Number: NO-B.I. PHARMACEUTICALS,INC./RIDGEFIELD-2012-EU-03338EU

PATIENT
  Age: 58 Year
  Sex: Male
  Weight: 124 kg

DRUGS (3)
  1. DABIGATRAN [Suspect]
     Indication: HEART VALVE REPLACEMENT
     Dosage: 600 mg
     Route: 048
     Dates: start: 20120623
  2. ALBYL -E [Concomitant]
     Indication: HYPERTENSION
     Dosage: 75 mg
     Route: 048
     Dates: start: 20120620
  3. ALBYL -E [Concomitant]
     Indication: HYPERCHOLESTEROLAEMIA

REACTIONS (1)
  - Pericardial effusion [Recovered/Resolved]
